FAERS Safety Report 4280718-4 (Version None)
Quarter: 2004Q1

REPORT INFORMATION
  Report Type: 
  Country: None (occurrence: None)
  Receive Date: 20040129
  Receipt Date: 20031016
  Transmission Date: 20041129
  Serious: No
  Sender: FDA-Public Use
  Company Number: US-BRISTOL-MYERS SQUIBB COMPANY-12413035

PATIENT
  Age: 69 Year
  Sex: Female
  Weight: 72 kg

DRUGS (16)
  1. GLUCOVANCE [Suspect]
     Indication: DIABETES MELLITUS
     Route: 048
     Dates: start: 20030829, end: 20031008
  2. METAGLIP [Suspect]
  3. SYNTHROID [Concomitant]
  4. LIPITOR [Concomitant]
  5. LASIX [Concomitant]
  6. ALBUTEROL [Concomitant]
  7. POTASSIUM [Concomitant]
  8. ATROVENT [Concomitant]
  9. TRENTAL [Concomitant]
  10. ZOLOFT [Concomitant]
  11. PRILOSEC [Concomitant]
  12. TRANXENE [Concomitant]
  13. MULTI-VITAMIN [Concomitant]
  14. VITAMIN C [Concomitant]
  15. CALTRATE [Concomitant]
  16. FIBERCON [Concomitant]

REACTIONS (1)
  - BLOOD GLUCOSE DECREASED [None]
